FAERS Safety Report 25394399 (Version 1)
Quarter: 2025Q2

REPORT INFORMATION
  Report Type: Spontaneous
  Country: CN (occurrence: CN)
  Receive Date: 20250604
  Receipt Date: 20250604
  Transmission Date: 20250717
  Serious: Yes (Other)
  Sender: ALKEM
  Company Number: CN-ALKEM LABORATORIES LIMITED-CN-ALKEM-2025-05737

PATIENT
  Age: 29 Year
  Sex: Male
  Weight: 63.2 kg

DRUGS (2)
  1. RILUZOLE [Suspect]
     Active Substance: RILUZOLE
     Indication: Product used for unknown indication
     Route: 048
  2. RILUZOLE [Suspect]
     Active Substance: RILUZOLE
     Route: 048

REACTIONS (7)
  - Amaurosis [Unknown]
  - Blood pressure decreased [Unknown]
  - Heart rate decreased [Unknown]
  - White blood cells urine positive [Unknown]
  - Alanine aminotransferase increased [Unknown]
  - Dizziness [Unknown]
  - Nausea [Unknown]
